FAERS Safety Report 11777132 (Version 2)
Quarter: 2016Q4

REPORT INFORMATION
  Report Type: Other
  Country: US (occurrence: US)
  Receive Date: 20151125
  Receipt Date: 20161116
  Transmission Date: 20170206
  Serious: No
  Sender: FDA-Public Use
  Company Number: US-SHIRE-US201515427

PATIENT
  Sex: Female
  Weight: 64.9 kg

DRUGS (4)
  1. VPRIV [Suspect]
     Active Substance: VELAGLUCERASE ALFA
     Indication: GAUCHER^S DISEASE
     Dosage: 2400 U (40 U/KG),1X/2WKS
     Route: 041
     Dates: start: 201002
  2. TRICARE PRENATAL DHA ONE [Concomitant]
     Active Substance: .ALPHA.-TOCOPHEROL, D-\ASCORBIC ACID\BIOTIN\CHOLECALCIFEROL\CUPRIC SULFATE ANHYDROUS\CYANOCOBALAMIN\DOCONEXENT\DOCUSATE SODIUM\FERROUS FUMARATE\FISH OIL\FOLIC ACID\ICOSAPENT\INOSITOL NIACINATE\PYRIDOXINE HYDROCHLORIDE\RIBOFLAVIN\THIAMINE MONONITRATE\ZINC SULFATE MONOHYDRATE
     Indication: SUPPLEMENTATION THERAPY
     Dosage: 500 MG, 1X/DAY:QD
     Route: 048
     Dates: start: 20150127
  3. VPRIV [Suspect]
     Active Substance: VELAGLUCERASE ALFA
     Dosage: UNK (40 UNITS), 1X/2WKS
     Route: 041
  4. TRICARE PRENATAL DHA ONE [Concomitant]
     Active Substance: .ALPHA.-TOCOPHEROL, D-\ASCORBIC ACID\BIOTIN\CHOLECALCIFEROL\CUPRIC SULFATE ANHYDROUS\CYANOCOBALAMIN\DOCONEXENT\DOCUSATE SODIUM\FERROUS FUMARATE\FISH OIL\FOLIC ACID\ICOSAPENT\INOSITOL NIACINATE\PYRIDOXINE HYDROCHLORIDE\RIBOFLAVIN\THIAMINE MONONITRATE\ZINC SULFATE MONOHYDRATE
     Indication: PRENATAL CARE

REACTIONS (2)
  - No adverse event [Recovered/Resolved]
  - Maternal exposure during pregnancy [Recovered/Resolved]
